FAERS Safety Report 4305479-1 (Version None)
Quarter: 2004Q1

REPORT INFORMATION
  Report Type: 
  Country: None (occurrence: None)
  Receive Date: 20040226
  Receipt Date: 20030915
  Transmission Date: 20041129
  Serious: No
  Sender: FDA-Public Use
  Company Number: US-BRISTOL-MYERS SQUIBB COMPANY-12383758

PATIENT
  Age: 45 Year
  Sex: Female
  Weight: 63 kg

DRUGS (4)
  1. ABILIFY [Suspect]
     Dosage: DURATION OF THERAPY: 1 TO 3 MONTHS
     Route: 048
  2. RISPERDAL [Concomitant]
  3. CLOZARIL [Concomitant]
  4. ATIVAN [Concomitant]

REACTIONS (5)
  - ABNORMAL BEHAVIOUR [None]
  - AGGRESSION [None]
  - DELUSION [None]
  - SLEEP DISORDER [None]
  - TARDIVE DYSKINESIA [None]
